FAERS Safety Report 4733884-8 (Version None)
Quarter: 2005Q3

REPORT INFORMATION
  Report Type: 
  Country: None (occurrence: None)
  Receive Date: 20050729
  Receipt Date: 20050722
  Transmission Date: 20060218
  Serious: Yes (Hospitalization)
  Sender: FDA-Public Use
  Company Number: 200512259GDS

PATIENT
  Age: 83 Year

DRUGS (7)
  1. CIPROFLOXACIN [Suspect]
     Indication: URINARY TRACT INFECTION
     Dosage: ORAL
     Route: 048
     Dates: start: 20050508, end: 20050513
  2. PANTOPRAZOLE [Suspect]
     Dosage: ORAL
     Route: 048
     Dates: end: 20050518
  3. CARBIMAZOLE [Suspect]
     Indication: THYROID DISORDER
     Dosage: 5 MG, TOTAL DAILY, ORAL
     Route: 048
     Dates: end: 20050527
  4. RITUXIMAB [Suspect]
     Indication: B-CELL LYMPHOMA
     Dosage: 525 MG, TOTAL DAILY, INTRAVENOUS
     Route: 042
     Dates: start: 20041112, end: 20050308
  5. CYCLOPHOSPHAMIDE [Suspect]
     Indication: B-CELL LYMPHOMA
     Dosage: 900 MG, TOTAL DAILY, INTRAVENOUS
     Route: 042
     Dates: start: 20040112, end: 20050308
  6. DOXORUBICIN HCL [Suspect]
     Indication: B-CELL LYMPHOMA
     Dosage: 80 MG, TOTAL DAILY, INTRAVENOUS
     Route: 042
     Dates: start: 20041112, end: 20050308
  7. VINCRISTINE [Suspect]
     Indication: B-CELL LYMPHOMA
     Dosage: 1.8 MG, TOTAL DAILY, INTRAVENOUS
     Route: 042

REACTIONS (4)
  - COAGULATION TIME PROLONGED [None]
  - HEPATITIS CHRONIC ACTIVE [None]
  - HEPATITIS TOXIC [None]
  - JAUNDICE HEPATOCELLULAR [None]
